FAERS Safety Report 7285770-X (Version None)
Quarter: 2011Q1

REPORT INFORMATION
  Report Type: 
  Country: None (occurrence: None)
  Receive Date: 20110210
  Receipt Date: 20110131
  Transmission Date: 20110831
  Serious: Yes (Hospitalization)
  Sender: FDA-Public Use
  Company Number: US-ABBOTT-08P-163-0471403-00

PATIENT
  Sex: Male
  Weight: 57 kg

DRUGS (4)
  1. AZATHIOPRINE [Concomitant]
     Indication: CROHN'S DISEASE
     Route: 048
     Dates: start: 20080101
  2. HUMIRA [Suspect]
     Indication: CROHN'S DISEASE
     Route: 058
     Dates: start: 20080724, end: 20080807
  3. PRILOSEC [Concomitant]
     Indication: GASTROOESOPHAGEAL REFLUX DISEASE
     Dates: start: 20050801
  4. ADVAIR [Concomitant]
     Indication: ASTHMA
     Route: 055
     Dates: start: 20070827

REACTIONS (1)
  - CROHN'S DISEASE [None]
